FAERS Safety Report 22009872 (Version 1)
Quarter: 2023Q1

REPORT INFORMATION
  Report Type: Spontaneous
  Country: US (occurrence: US)
  Receive Date: 20230220
  Receipt Date: 20230220
  Transmission Date: 20230417
  Serious: Yes (Hospitalization)
  Sender: FDA-Public Use
  Company Number: US-SA-2023SA054970

PATIENT
  Age: 11 Year
  Sex: Male
  Weight: 39.4 kg

DRUGS (1)
  1. NEXVIAZYME [Suspect]
     Active Substance: AVALGLUCOSIDASE ALFA-NGPT
     Indication: Glycogen storage disease type II
     Dosage: 900 MG, QOW
     Route: 042
     Dates: start: 202212

REACTIONS (2)
  - Respiratory tract infection [Unknown]
  - Weight decreased [Unknown]
